FAERS Safety Report 6217341-8 (Version None)
Quarter: 2009Q2

REPORT INFORMATION
  Report Type: 
  Country: None (occurrence: None)
  Receive Date: 20090608
  Receipt Date: 20081230
  Transmission Date: 20091009
  Serious: No
  Sender: FDA-Public Use
  Company Number: A0668149A

PATIENT
  Age: 43 Year
  Sex: Male

DRUGS (7)
  1. WELLBUTRIN XL [Suspect]
     Indication: DEPRESSION
     Dosage: 150MG PER DAY
     Route: 048
     Dates: start: 20070731
  2. PRISTIQ [Suspect]
     Indication: STRESS
     Dosage: 50MG PER DAY
     Dates: start: 20081201
  3. BENAZEPRIL HYDROCHLORIDE [Concomitant]
  4. ZETIA [Concomitant]
  5. ZYRTEC [Concomitant]
  6. NEXIUM [Concomitant]
  7. VITAMIN D [Concomitant]

REACTIONS (3)
  - ABDOMINAL DISCOMFORT [None]
  - DRUG INTERACTION [None]
  - HEADACHE [None]
